FAERS Safety Report 11844712 (Version 1)
Quarter: 2015Q4

REPORT INFORMATION
  Report Type: Spontaneous
  Country: None (occurrence: None)
  Receive Date: 20151216
  Receipt Date: 20151216
  Transmission Date: 20160305
  Serious: Yes (Other)
  Sender: FDA-Public Use
  Company Number: None

PATIENT
  Age: 60 Year
  Sex: Female

DRUGS (1)
  1. VIVELLE-DOT [Suspect]
     Active Substance: ESTRADIOL
     Indication: HORMONE REPLACEMENT THERAPY
     Route: 061

REACTIONS (4)
  - Insomnia [None]
  - Emotional disorder [None]
  - Dysmenorrhoea [None]
  - Product physical issue [None]

NARRATIVE: CASE EVENT DATE: 20151115
